FAERS Safety Report 7093365-6 (Version None)
Quarter: 2010Q4

REPORT INFORMATION
  Report Type: 
  Country: None (occurrence: None)
  Receive Date: 20101110
  Receipt Date: 20101103
  Transmission Date: 20110411
  Serious: Yes (Other)
  Sender: FDA-Public Use
  Company Number: NO-PFIZER INC-2008042197

PATIENT
  Age: 33 Year
  Sex: Female

DRUGS (3)
  1. LYRICA [Suspect]
     Indication: GENERALISED ANXIETY DISORDER
     Route: 048
     Dates: end: 20080501
  2. IMOVANE [Concomitant]
     Route: 048
     Dates: end: 20080414
  3. LEVOTHYROXINE SODIUM [Concomitant]
     Dosage: 600 UG, WEEKLY
     Route: 048

REACTIONS (5)
  - ANXIETY [None]
  - DRUG DEPENDENCE [None]
  - EUPHORIC MOOD [None]
  - INCORRECT DOSE ADMINISTERED [None]
  - WITHDRAWAL SYNDROME [None]
